APPROVED DRUG PRODUCT: SUMATRIPTAN SUCCINATE
Active Ingredient: SUMATRIPTAN SUCCINATE
Strength: EQ 25MG BASE
Dosage Form/Route: TABLET;ORAL
Application: A078298 | Product #001
Applicant: HIKMA PHARMACEUTICALS
Approved: May 21, 2013 | RLD: No | RS: No | Type: DISCN